FAERS Safety Report 6124885-6 (Version None)
Quarter: 2009Q1

REPORT INFORMATION
  Report Type: 
  Country: None (occurrence: None)
  Receive Date: 20090319
  Receipt Date: 20090224
  Transmission Date: 20090719
  Serious: Yes (Death, Hospitalization)
  Sender: FDA-Public Use
  Company Number: DE-ROCHE-599071

PATIENT
  Sex: Female
  Weight: 66.9 kg

DRUGS (6)
  1. CAPECITABINE [Suspect]
     Indication: GASTRIC CANCER
     Dosage: FREQUENCY REPORTED AS: D1-14-Q3W BID
     Route: 048
     Dates: end: 20081123
  2. BLINDED BEVACIZUMAB [Suspect]
     Indication: GASTRIC CANCER
     Dosage: DOSAGE FORM :INFUSION DOSE BLINDED
     Route: 042
     Dates: start: 20080721, end: 20081123
  3. CISPLATIN [Suspect]
     Indication: GASTRIC CANCER
     Dosage: FORM REPORTED AS: INFUSION
     Route: 042
     Dates: start: 20080721, end: 20081123
  4. PANTOZOL [Concomitant]
     Dates: start: 20071101, end: 20081123
  5. TRAMADOL HCL [Concomitant]
     Dosage: TAKEN AS NEEDED
     Dates: start: 20070625, end: 20081123
  6. NOVAMIN [Concomitant]
     Dosage: DOSE REPORTED AS : TAKEN AS NEEDED
     Dates: start: 20070725, end: 20081123

REACTIONS (2)
  - COR PULMONALE ACUTE [None]
  - DYSPNOEA [None]
